FAERS Safety Report 7329591-8 (Version None)
Quarter: 2011Q1

REPORT INFORMATION
  Report Type: 
  Country: None (occurrence: None)
  Receive Date: 20110303
  Receipt Date: 20110218
  Transmission Date: 20110831
  Serious: Yes (Hospitalization)
  Sender: FDA-Public Use
  Company Number: BE-PFIZER INC-2011036394

PATIENT
  Age: 40 Year
  Sex: Female

DRUGS (2)
  1. TRIPTORELIN ACETATE [Suspect]
     Indication: BREAST CANCER
     Dosage: 3.75 MG, UNK
     Route: 030
     Dates: start: 20080813
  2. EXEMESTANE [Suspect]
     Indication: BREAST CANCER
     Dosage: 25 MG, 1X/DAY
     Route: 048
     Dates: start: 20080813

REACTIONS (1)
  - TYPE 2 DIABETES MELLITUS [None]
